FAERS Safety Report 4655849-7 (Version None)
Quarter: 2005Q2

REPORT INFORMATION
  Report Type: 
  Country: None (occurrence: None)
  Receive Date: 20050506
  Receipt Date: 20050506
  Transmission Date: 20051028
  Serious: Yes (Other)
  Sender: FDA-Public Use
  Company Number: None

PATIENT

DRUGS (2)
  1. ERGOCALCIFEROL INJECTION (CALCIFEROL) 50,000 IU/ML [Suspect]
     Dosage: 50,000 IU NOW, QWEEK , X4
     Dates: start: 20050430
  2. ERGOCALCIFEROL CAPSULES (DRISDOL) 50,000 IU [Suspect]

REACTIONS (3)
  - DRUG PRESCRIBING ERROR [None]
  - INTERCEPTED MEDICATION ERROR [None]
  - MEDICATION ERROR [None]
